FAERS Safety Report 9454347 (Version 1)
Quarter: 2013Q3

REPORT INFORMATION
  Report Type: Spontaneous
  Country: US (occurrence: None)
  Receive Date: 20130809
  Receipt Date: 20130809
  Transmission Date: 20140515
  Serious: Yes (Other)
  Sender: FDA-Public Use
  Company Number: None

PATIENT
  Age: 18 Year
  Sex: Male
  Weight: 81.65 kg

DRUGS (2)
  1. TOPOMAX [Suspect]
     Indication: BIPOLAR DISORDER
     Dosage: 50MG TID PO
     Route: 048
     Dates: start: 20110915, end: 20120112
  2. TOPOMAX [Suspect]
     Indication: MIGRAINE
     Dosage: 50MG TID PO
     Route: 048
     Dates: start: 20110915, end: 20120112

REACTIONS (1)
  - Drug ineffective [None]
